FAERS Safety Report 8125059-X (Version None)
Quarter: 2012Q1

REPORT INFORMATION
  Report Type: 
  Country: None (occurrence: None)
  Receive Date: 20120209
  Receipt Date: 20120203
  Transmission Date: 20120608
  Serious: Yes (Other)
  Sender: FDA-Public Use
  Company Number: US-CELGENEUS-163-21880-12020490

PATIENT
  Age: 27 Year
  Sex: Male

DRUGS (9)
  1. BORTEZOMIB [Concomitant]
     Indication: MULTIPLE MYELOMA
     Dosage: 1.3 MILLIGRAM/SQ. METER
     Route: 065
     Dates: start: 20080401, end: 20080601
  2. REVLIMID [Suspect]
     Indication: MULTIPLE MYELOMA
     Dosage: 15 MILLIGRAM
     Route: 048
     Dates: start: 20080401, end: 20080601
  3. REVLIMID [Suspect]
     Dosage: 25 MILLIGRAM
     Route: 048
     Dates: end: 20090310
  4. MELPHALAN HYDROCHLORIDE [Concomitant]
     Dosage: 200 MILLIGRAM/SQ. METER
     Route: 065
     Dates: start: 20080701
  5. REVLIMID [Suspect]
     Dosage: 15 MILLIGRAM
     Route: 048
     Dates: start: 20081001, end: 20081201
  6. CYCLOPHOSPHAMIDE [Concomitant]
     Dosage: 4 G/M2
     Route: 065
     Dates: start: 20080101
  7. BORTEZOMIB [Concomitant]
     Dosage: 1.3 MILLIGRAM/SQ. METER
     Route: 065
     Dates: start: 20081001, end: 20081201
  8. DEXAMETHASONE [Concomitant]
     Indication: MULTIPLE MYELOMA
     Dosage: 40 MILLIGRAM
     Route: 048
     Dates: start: 20080401, end: 20080601
  9. DEXAMETHASONE [Concomitant]
     Dosage: 40 MILLIGRAM
     Route: 048
     Dates: start: 20081001, end: 20081201

REACTIONS (4)
  - IDIOPATHIC THROMBOCYTOPENIC PURPURA [None]
  - LEUKOPENIA [None]
  - ALOPECIA [None]
  - THROMBOCYTOPENIA [None]
